FAERS Safety Report 9257352 (Version 1)
Quarter: 2013Q2

REPORT INFORMATION
  Report Type: Spontaneous
  Country: US (occurrence: US)
  Receive Date: 20130426
  Receipt Date: 20130426
  Transmission Date: 20140414
  Serious: Yes (Hospitalization)
  Sender: FDA-Public Use
  Company Number: US-BAYER-2013-051749

PATIENT
  Age: 35 Year
  Sex: Female
  Weight: 108.84 kg

DRUGS (15)
  1. YASMIN [Suspect]
     Indication: PREMENSTRUAL CRAMPS
  2. YASMIN [Suspect]
     Indication: MIGRAINE
  3. YASMIN [Suspect]
     Indication: MENORRHAGIA
  4. PSEUDOVENT DM [Concomitant]
     Dosage: UNK
     Dates: start: 20051031
  5. AMOXICILLIN W/POTASSIUM CLAVULANATE [Concomitant]
     Dosage: 500-125 MG
     Dates: start: 20051031
  6. MTV [Concomitant]
     Dosage: UNK
     Dates: start: 20051108
  7. CEPHALEXIN [Concomitant]
     Dosage: 500 MG, UNK
     Dates: start: 20051123
  8. CITRATE OF MAGNESIUM [Concomitant]
     Dosage: UNK
     Dates: start: 20051123
  9. SENNA-S [Concomitant]
     Dosage: UNK
     Dates: start: 20051123
  10. ACTIQ [Concomitant]
     Dosage: 200 MCG
     Dates: start: 20051123
  11. PROCHLORPERAZINE [Concomitant]
     Dosage: 5 MG, UNK
     Dates: start: 20051123
  12. DARVOCET-N [Concomitant]
  13. PHENERGAN [Concomitant]
     Indication: MIGRAINE
  14. SYNTHROID [Concomitant]
  15. MOTRIN [Concomitant]
     Indication: MIGRAINE

REACTIONS (3)
  - Pulmonary embolism [None]
  - Deep vein thrombosis [Recovered/Resolved]
  - Thrombophlebitis superficial [None]
